FAERS Safety Report 6985916-4 (Version None)
Quarter: 2010Q3

REPORT INFORMATION
  Report Type: 
  Country: None (occurrence: None)
  Receive Date: 20100827
  Receipt Date: 20100722
  Transmission Date: 20110219
  Serious: No
  Sender: FDA-Public Use
  Company Number: 015056

PATIENT
  Sex: Male
  Weight: 91 kg

DRUGS (4)
  1. LACOSAMIDE [Suspect]
     Indication: CONVULSION
     Dosage: (100 MG BID, ONE TABLET IN THE MORNING AND THE OTHER  IN THE AFTERNOON, ORAL)
     Route: 048
     Dates: start: 20100601
  2. DEPAKOTE [Concomitant]
  3. TEGRETOL [Concomitant]
  4. ZONEGRAN [Concomitant]

REACTIONS (11)
  - ABDOMINAL DISCOMFORT [None]
  - BACK PAIN [None]
  - CONVULSION [None]
  - COUGH [None]
  - DISCOMFORT [None]
  - DIZZINESS [None]
  - FALL [None]
  - HYPERSOMNIA [None]
  - NECK PAIN [None]
  - PAIN IN EXTREMITY [None]
  - URINE COLOUR ABNORMAL [None]
